FAERS Safety Report 5430028-4 (Version None)
Quarter: 2007Q3

REPORT INFORMATION
  Report Type: 
  Country: None (occurrence: None)
  Receive Date: 20070829
  Receipt Date: 20070817
  Transmission Date: 20080115
  Serious: Yes (Hospitalization, Other)
  Sender: FDA-Public Use
  Company Number: CL-PFIZER INC-2007065576

PATIENT
  Age: 65 Year
  Sex: Female
  Weight: 58 kg

DRUGS (4)
  1. CHAMPIX [Suspect]
     Indication: SMOKING CESSATION THERAPY
     Route: 048
     Dates: start: 20070705, end: 20070802
  2. AROMASIN [Suspect]
     Indication: BREAST CANCER
     Route: 048
  3. CALCIUM [Concomitant]
     Route: 048
     Dates: start: 20020101, end: 20070801
  4. GLUCOSAMINE [Concomitant]
     Route: 048
     Dates: start: 20020101, end: 20070801

REACTIONS (4)
  - ABDOMINAL PAIN UPPER [None]
  - CARDIAC FAILURE [None]
  - CHEST PAIN [None]
  - HEADACHE [None]
